FAERS Safety Report 10243523 (Version 2)
Quarter: 2014Q2

REPORT INFORMATION
  Report Type: Spontaneous
  Country: US (occurrence: None)
  Receive Date: 20140616
  Receipt Date: 20140625
  Transmission Date: 20141212
  Serious: Yes (Other)
  Sender: FDA-Public Use
  Company Number: ADR-2014-00770

PATIENT
  Sex: Female

DRUGS (3)
  1. BACLOFEN [Suspect]
     Indication: PAIN
  2. BUPIVACAINE [Suspect]
  3. DILAUDID [Suspect]
     Dosage: 0.699 MG/DAY

REACTIONS (10)
  - Fatigue [None]
  - Somnolence [None]
  - Device kink [None]
  - Device leakage [None]
  - Device connection issue [None]
  - Implant site erythema [None]
  - Implant site pain [None]
  - Burning sensation [None]
  - Therapeutic response decreased [None]
  - Device dislocation [None]
